FAERS Safety Report 8864274 (Version 1)
Quarter: 2012Q4

REPORT INFORMATION
  Report Type: 
  Country: US (occurrence: US)
  Receive Date: 20121024
  Receipt Date: 20121024
  Transmission Date: 20130627
  Serious: No
  Sender: FDA-Public Use
  Company Number: US-AMGEN-USASP2011066604

PATIENT
  Age: 61 Year
  Sex: Male
  Weight: 113.38 kg

DRUGS (11)
  1. ENBREL [Suspect]
     Indication: PRODUCT USED FOR UNKNOWN INDICATION
     Dosage: 50 mg, qwk
     Route: 058
  2. AMLODIPINE [Concomitant]
     Dosage: 2.5 mg, UNK
     Route: 048
  3. GEMFIBROZIL [Concomitant]
     Dosage: 600 mg, UNK
     Route: 048
  4. BUMETANIDE [Concomitant]
     Dosage: .5 mg, UNK
     Route: 048
  5. HYDROXYCHLOROQUINE [Concomitant]
     Dosage: 200 mg, UNK
     Route: 048
  6. CRESTOR [Concomitant]
     Dosage: 10 mg, UNK
     Route: 048
  7. METOPROLOL TARTRATE [Concomitant]
     Dosage: 25 mg, UNK
     Route: 048
  8. ONE-A-DAY MEN^S [Concomitant]
     Dosage: UNK
     Route: 048
  9. CALCIUM [Concomitant]
     Dosage: UNK
     Route: 048
  10. B-12 [Concomitant]
     Dosage: 1000 mug, UNK
     Route: 048
  11. BABY ASPIRIN [Concomitant]
     Dosage: 81 mg, UNK

REACTIONS (2)
  - Cough [Recovered/Resolved]
  - Pulmonary congestion [Recovered/Resolved]
